FAERS Safety Report 10010823 (Version 5)
Quarter: 2014Q2

REPORT INFORMATION
  Report Type: Spontaneous
  Country: IT (occurrence: None)
  Receive Date: 20140311
  Receipt Date: 20140430
  Transmission Date: 20141212
  Serious: Yes (Hospitalization)
  Sender: FDA-Public Use
  Company Number: AUR-APL-2014-02536

PATIENT
  Age: 67 Year
  Sex: Male
  Weight: 80 kg

DRUGS (2)
  1. METFORMIN [Suspect]
     Indication: TYPE 2 DIABETES MELLITUS
     Dosage: (2 DOSAGE FORMS, 1 D)
     Route: 048
     Dates: start: 20130123, end: 20130623
  2. VOLTAREN [Concomitant]

REACTIONS (8)
  - Vomiting [None]
  - Metabolic acidosis [None]
  - Pulmonary oedema [None]
  - Respiratory disorder [None]
  - Blood creatinine increased [None]
  - Dialysis [None]
  - Renal impairment [None]
  - Lactic acidosis [None]
